FAERS Safety Report 25134048 (Version 1)
Quarter: 2025Q1

REPORT INFORMATION
  Report Type: Report from Study
  Country: US (occurrence: US)
  Receive Date: 20250328
  Receipt Date: 20250328
  Transmission Date: 20250409
  Serious: Yes (Other)
  Sender: AMGEN
  Company Number: US-AMGEN-USASL2025056782

PATIENT
  Sex: Female

DRUGS (1)
  1. PROLIA [Suspect]
     Active Substance: DENOSUMAB
     Indication: Osteoporosis
     Dosage: 60 MILLIGRAM PER MILLILITRE, Q6MO
     Route: 058
     Dates: start: 20241009

REACTIONS (5)
  - Squamous cell carcinoma of skin [Unknown]
  - Oral discomfort [Unknown]
  - Fatigue [Unknown]
  - Hyperkeratosis lenticularis perstans [Unknown]
  - Alopecia [Unknown]
